FAERS Safety Report 13579666 (Version 1)
Quarter: 2017Q2

REPORT INFORMATION
  Report Type: Spontaneous
  Country: US (occurrence: US)
  Receive Date: 20170524
  Receipt Date: 20170524
  Transmission Date: 20170830
  Serious: Yes (Disabling)
  Sender: FDA-Public Use
  Company Number: None

PATIENT
  Age: 70 Year
  Sex: Female
  Weight: 83.25 kg

DRUGS (8)
  1. CAL 500 MG/MAG 250 MG [Concomitant]
  2. COQ10 [Concomitant]
     Active Substance: UBIDECARENONE
  3. MILK THISTLE (200 MG SILYMARIN) [Concomitant]
  4. LEVAQUIN [Suspect]
     Active Substance: LEVOFLOXACIN
     Indication: PRODUCT USED FOR UNKNOWN INDICATION
     Dates: start: 20170127, end: 20170202
  5. OMEGA 3 FATTY ACIDS (500 MG TOTAL EPA + DHA) [Concomitant]
  6. LATANOPROST. [Concomitant]
     Active Substance: LATANOPROST
  7. VITAMIN D3 [Concomitant]
     Active Substance: CHOLECALCIFEROL
  8. CENTRUM SILVER WOMEN 50+ [Concomitant]

REACTIONS (3)
  - Pain in extremity [None]
  - Inflammation [None]
  - Oedema [None]

NARRATIVE: CASE EVENT DATE: 20170130
